FAERS Safety Report 8936412 (Version 3)
Quarter: 2016Q3

REPORT INFORMATION
  Report Type: Report from Study
  Country: IT (occurrence: IT)
  Receive Date: 20121130
  Receipt Date: 20160704
  Transmission Date: 20161109
  Serious: Yes (Disabling)
  Sender: FDA-Public Use
  Company Number: IT-JNJFOC-20121114577

PATIENT
  Age: 30 Year
  Sex: Female

DRUGS (2)
  1. MESALAZINE [Concomitant]
     Active Substance: MESALAMINE
     Dates: start: 200904
  2. REMICADE [Suspect]
     Active Substance: INFLIXIMAB
     Indication: CROHN^S DISEASE
     Route: 042

REACTIONS (1)
  - Seborrhoeic dermatitis [Recovering/Resolving]

NARRATIVE: CASE EVENT DATE: 20091015
